FAERS Safety Report 10157747 (Version 3)
Quarter: 2014Q4

REPORT INFORMATION
  Report Type: Report from Study
  Country: US (occurrence: US)
  Receive Date: 20140507
  Receipt Date: 20141125
  Transmission Date: 20150528
  Serious: Yes (Hospitalization, Other)
  Sender: FDA-Public Use
  Company Number: US-ACTELION-A-US2014-98392

PATIENT
  Age: 31 Year
  Sex: Male

DRUGS (6)
  1. TRACLEER [Suspect]
     Active Substance: BOSENTAN\BOSENTAN MONOHYDRATE
     Indication: HEART DISEASE CONGENITAL
     Dosage: UNK
     Route: 048
  2. REMODULIN [Concomitant]
     Active Substance: TREPROSTINIL
  3. LOVENOX [Concomitant]
     Active Substance: ENOXAPARIN SODIUM
  4. COUMADIN [Concomitant]
     Active Substance: WARFARIN SODIUM
  5. SILDENAFIL. [Concomitant]
     Active Substance: SILDENAFIL
  6. TADALAFIL [Concomitant]
     Active Substance: TADALAFIL

REACTIONS (5)
  - Lung disorder [Unknown]
  - Abdominal distension [Unknown]
  - Cardiac disorder [Unknown]
  - Heart and lung transplant [Unknown]
  - Fluid retention [Unknown]
